FAERS Safety Report 10080241 (Version 2)
Quarter: 2014Q2

REPORT INFORMATION
  Report Type: Report from Study
  Country: DE (occurrence: DE)
  Receive Date: 20140415
  Receipt Date: 20140509
  Transmission Date: 20141212
  Serious: Yes (Other)
  Sender: FDA-Public Use
  Company Number: DE-BAXTER-2014BAX018004

PATIENT
  Age: 46 Year
  Sex: Male

DRUGS (1)
  1. ADVATE  250 I.E. [Suspect]
     Indication: PRODUCT USED FOR UNKNOWN INDICATION
     Route: 042

REACTIONS (2)
  - Haemorrhagic diathesis [Unknown]
  - Factor VIII inhibition [Unknown]
